FAERS Safety Report 4359653-9 (Version None)
Quarter: 2004Q2

REPORT INFORMATION
  Report Type: 
  Country: None (occurrence: None)
  Receive Date: 20040513
  Receipt Date: 20040506
  Transmission Date: 20050107
  Serious: Yes (Other)
  Sender: FDA-Public Use
  Company Number: CA-SHR-04-019978

PATIENT
  Sex: Female

DRUGS (1)
  1. MIRENA [Suspect]
     Dosage: 0.02 MG, INTRA-UTERINE
     Route: 015

REACTIONS (1)
  - HYPERTENSIVE CRISIS [None]
